FAERS Safety Report 25023304 (Version 2)
Quarter: 2025Q1

REPORT INFORMATION
  Report Type: Spontaneous
  Country: ES (occurrence: ES)
  Receive Date: 20250228
  Receipt Date: 20250313
  Transmission Date: 20250409
  Serious: Yes (Life-Threatening, Hospitalization, Other)
  Sender: GLAXOSMITHKLINE
  Company Number: None

PATIENT

DRUGS (18)
  1. SHINGRIX [Suspect]
     Active Substance: RECOMBINANT VARICELLA ZOSTER VIRUS (VZV) GLYCOPROTEIN E
     Indication: Prophylaxis
     Route: 030
     Dates: start: 20250116
  2. LAMOTRIGINE [Suspect]
     Active Substance: LAMOTRIGINE
     Indication: Epilepsy
     Dosage: 75 MG, BID, 12 HOURS
     Route: 048
     Dates: start: 20230203
  3. HBVAXPRO [Suspect]
     Active Substance: HEPATITIS B VIRUS VACCINE
     Indication: Prophylaxis
     Route: 030
     Dates: start: 20250116
  4. COMIRNATY (TOZINAMERAN) [Suspect]
     Active Substance: TOZINAMERAN
     Indication: Prophylaxis
     Route: 030
     Dates: start: 20250116
  5. PREVNAR 20 [Suspect]
     Active Substance: PNEUMOCOCCAL 20-VALENT CONJUGATE VACCINE
     Indication: Prophylaxis
     Route: 030
     Dates: start: 20250116
  6. PREDNISONE [Concomitant]
     Active Substance: PREDNISONE
     Indication: Inflammatory bowel disease
     Dosage: 60 MG, QD, 2/24H, 30 TABLETS
     Route: 048
     Dates: start: 20241230
  7. ISONIAZID\PYRIDOXINE HYDROCHLORIDE [Concomitant]
     Active Substance: ISONIAZID\PYRIDOXINE HYDROCHLORIDE
     Indication: Tuberculin test positive
     Dosage: 300 MG/50 MG TABLETS, 30 TABLETS, 1 EVERY 24 HOURS
     Route: 065
     Dates: start: 20241230
  8. POTASSIUM CHLORIDE [Concomitant]
     Active Substance: POTASSIUM CHLORIDE
     Indication: Product used for unknown indication
     Dosage: 1200 MG, QD, 2 EVERY 24 HOURS, 60 CAPSULES
     Route: 048
     Dates: start: 20241230
  9. Salofalk [Concomitant]
     Indication: Inflammatory bowel disease
     Dosage: 3 G, QD, 1/ 24 HOURS, MODIFIED-RELEASE/PROLONGED RELEASE GRANULES, 60 SACHETS
     Route: 048
     Dates: start: 20231031
  10. MESALAMINE [Concomitant]
     Active Substance: MESALAMINE
     Indication: Inflammatory bowel disease
     Route: 054
     Dates: start: 20240110
  11. FERPLEX [Concomitant]
     Indication: Product used for unknown indication
     Route: 048
     Dates: start: 20241126
  12. ESOMEPRAZOLE [Concomitant]
     Active Substance: ESOMEPRAZOLE
     Indication: Product used for unknown indication
     Dosage: 20 MG, BID, 12 HOURS, 28 TABLETS
     Route: 048
     Dates: start: 20231027
  13. RISEDRONIC ACID [Concomitant]
     Active Substance: RISEDRONIC ACID
     Indication: Osteoporosis
     Dosage: 35 MG, WE, 4 TABLETS
     Route: 048
     Dates: start: 20220606
  14. CALCIUM CARBONATE\CHOLECALCIFEROL [Concomitant]
     Active Substance: CALCIUM CARBONATE\CHOLECALCIFEROL
     Indication: Osteoporosis
     Dosage: 1 DF, QD, 600 MG/1000 IU, 30 TABLETS
     Route: 048
     Dates: start: 20220606
  15. ZALDIAR [Concomitant]
     Active Substance: ACETAMINOPHEN\TRAMADOL HYDROCHLORIDE
     Indication: Product used for unknown indication
     Route: 065
     Dates: start: 20220328
  16. AMLODIPINE [Concomitant]
     Active Substance: AMLODIPINE BESYLATE
     Indication: Hypertension
     Dosage: 5 MG, QD, 30 TABLETS
     Route: 048
     Dates: start: 20190709
  17. HYDROCHLOROTHIAZIDE [Concomitant]
     Active Substance: HYDROCHLOROTHIAZIDE
     Indication: Hypertension
     Dosage: 5 MG, QD, 20 TABLETS
     Route: 048
     Dates: start: 20190709
  18. ADALIMUMAB [Concomitant]
     Active Substance: ADALIMUMAB
     Indication: Inflammatory bowel disease
     Route: 058
     Dates: start: 20250124

REACTIONS (1)
  - Toxic epidermal necrolysis [Recovered/Resolved]

NARRATIVE: CASE EVENT DATE: 20250124
